FAERS Safety Report 4427854-7 (Version None)
Quarter: 2004Q3

REPORT INFORMATION
  Report Type: 
  Country: None (occurrence: None)
  Receive Date: 20040812
  Receipt Date: 20040803
  Transmission Date: 20050211
  Serious: Yes (Hospitalization, Disabling)
  Sender: FDA-Public Use
  Company Number: 2004226756JP

PATIENT
  Age: 52 Year
  Sex: Male

DRUGS (3)
  1. AZULFIDINE EN-TABS [Suspect]
     Indication: RHEUMATOID ARTHRITIS
     Dosage: 1 G/DAY, ORAL
     Route: 048
     Dates: start: 20040715, end: 20040722
  2. NABOAL - SLOW RELEASE [Concomitant]
  3. FAMOTIDINE [Concomitant]

REACTIONS (3)
  - ENCEPHALITIS [None]
  - PANCYTOPENIA [None]
  - RASH [None]
